FAERS Safety Report 9191385 (Version 2)
Quarter: 2013Q2

REPORT INFORMATION
  Report Type: Report from Study
  Country: DE (occurrence: DE)
  Receive Date: 20130326
  Receipt Date: 20130514
  Transmission Date: 20140414
  Serious: Yes (Death)
  Sender: FDA-Public Use
  Company Number: DE-CUBIST PHARMACEUTICAL, INC.-2013CBST000217

PATIENT
  Age: 70 Year
  Sex: Male

DRUGS (6)
  1. CUBICIN [Suspect]
     Indication: SKIN INFECTION
     Dosage: 4 MG/KG, QD
     Route: 065
     Dates: start: 20120217
  2. CUBICIN [Suspect]
     Indication: OFF LABEL USE
     Dosage: 4 MG/KG, Q48H
     Route: 065
     Dates: end: 20120305
  3. BUSULFAN [Suspect]
     Indication: PLASMA CELL MYELOMA
     Dosage: 0.8 MG/KG, UNK
     Dates: start: 20120213, end: 20120219
  4. CYCLOPHOSPHAMIDE [Suspect]
     Indication: PLASMA CELL MYELOMA
     Dosage: 50MG/KG, QD
     Dates: start: 20120214, end: 20120215
  5. MEROPENEM [Concomitant]
     Indication: PRODUCT USED FOR UNKNOWN INDICATION
     Dosage: 3 G, UNK
     Dates: start: 20120217, end: 20120305
  6. MYCAMINE [Concomitant]
     Indication: PRODUCT USED FOR UNKNOWN INDICATION
     Dosage: 100 MG, UNK
     Dates: start: 20120220, end: 20120305

REACTIONS (8)
  - Septic shock [Fatal]
  - Neutrophil count abnormal [Fatal]
  - Coagulopathy [Fatal]
  - Leukopenia [Fatal]
  - Anaemia [Fatal]
  - Thrombocytopenia [Fatal]
  - Lactic acidosis [None]
  - Blood creatinine increased [None]
